FAERS Safety Report 5763476-3 (Version None)
Quarter: 2008Q2

REPORT INFORMATION
  Report Type: 
  Country: None (occurrence: None)
  Receive Date: 20080604
  Receipt Date: 20080604
  Transmission Date: 20081010
  Serious: Yes (Life-Threatening, Hospitalization)
  Sender: FDA-Public Use
  Company Number: None

PATIENT
  Age: 49 Year
  Sex: Male
  Weight: 87.1 kg

DRUGS (1)
  1. TRAZODONE HCL [Suspect]
     Indication: INSOMNIA
     Dosage: 100 MG HS PO
     Route: 048
     Dates: start: 20001204, end: 20080130

REACTIONS (2)
  - ANGIOEDEMA [None]
  - BRONCHOSPASM [None]
